FAERS Safety Report 5009058-2 (Version None)
Quarter: 2006Q2

REPORT INFORMATION
  Report Type: 
  Country: None (occurrence: None)
  Receive Date: 20060519
  Receipt Date: 20060511
  Transmission Date: 20061013
  Serious: Yes (Hospitalization)
  Sender: FDA-Public Use
  Company Number: 2006BI006888

PATIENT
  Age: 62 Year
  Sex: Female
  Weight: 54.4316 kg

DRUGS (7)
  1. AVONEX [Suspect]
     Indication: MULTIPLE SCLEROSIS
     Dosage: 30 UG; QW; IM
     Route: 030
  2. AVONEX [Suspect]
     Indication: MULTIPLE SCLEROSIS
     Dosage: 30 UG; QW; IM
     Route: 030
  3. NEXIUM [Concomitant]
  4. SULFAZINE [Concomitant]
  5. VERAPAMIL [Concomitant]
  6. TOPAMAX [Concomitant]
  7. CELEBREX [Concomitant]

REACTIONS (5)
  - DEPRESSION [None]
  - HEMIPARESIS [None]
  - HYPERTENSION [None]
  - NERVOUS SYSTEM DISORDER [None]
  - PRURITUS [None]
